FAERS Safety Report 6629750-3 (Version None)
Quarter: 2010Q1

REPORT INFORMATION
  Report Type: 
  Country: None (occurrence: None)
  Receive Date: 20100311
  Receipt Date: 20090916
  Transmission Date: 20100710
  Serious: Yes (Hospitalization)
  Sender: FDA-Public Use
  Company Number: US-BIOGENIDEC-2009BI019921

PATIENT
  Age: 58 Year
  Sex: Female

DRUGS (3)
  1. AVONEX [Suspect]
     Indication: MULTIPLE SCLEROSIS
     Route: 030
     Dates: start: 20031002, end: 20070328
  2. AVONEX [Suspect]
     Route: 030
     Dates: start: 20070913, end: 20090501
  3. AVONEX [Suspect]
     Route: 030
     Dates: start: 20090701

REACTIONS (1)
  - MULTIPLE SCLEROSIS RELAPSE [None]
